FAERS Safety Report 18634309 (Version 1)
Quarter: 2020Q4

REPORT INFORMATION
  Report Type: Other
  Country: US (occurrence: US)
  Receive Date: 20201218
  Receipt Date: 20201218
  Transmission Date: 20210114
  Serious: Yes (Other)
  Sender: FDA-Public Use
  Company Number: US-ROCHE-2728149

PATIENT

DRUGS (7)
  1. CISPLATIN. [Suspect]
     Active Substance: CISPLATIN
     Indication: MESOTHELIOMA
     Route: 065
  2. BEVACIZUMAB. [Suspect]
     Active Substance: BEVACIZUMAB
     Indication: APPENDIX CANCER
  3. BEVACIZUMAB. [Suspect]
     Active Substance: BEVACIZUMAB
     Indication: MESOTHELIOMA
  4. DOXORUBICIN [Suspect]
     Active Substance: DOXORUBICIN
     Indication: MESOTHELIOMA
     Route: 065
  5. MITOMYCIN C [Suspect]
     Active Substance: MITOMYCIN
     Indication: COLORECTAL CANCER
  6. BEVACIZUMAB. [Suspect]
     Active Substance: BEVACIZUMAB
     Indication: COLORECTAL CANCER
     Route: 065
  7. MITOMYCIN C [Suspect]
     Active Substance: MITOMYCIN
     Indication: APPENDIX CANCER
     Dosage: 10 MG/L
     Route: 033

REACTIONS (7)
  - Anastomotic leak [Unknown]
  - Abdominal abscess [Unknown]
  - Wound infection [Unknown]
  - Anastomotic fistula [Unknown]
  - Impaired gastric emptying [Unknown]
  - Deep vein thrombosis [Unknown]
  - Pulmonary embolism [Unknown]
